FAERS Safety Report 5450946-0 (Version None)
Quarter: 2007Q3

REPORT INFORMATION
  Report Type: 
  Country: None (occurrence: None)
  Receive Date: 20070911
  Receipt Date: 20070901
  Transmission Date: 20080115
  Serious: Yes (Other)
  Sender: FDA-Public Use
  Company Number: CHPA2007US09445

PATIENT
  Age: 4 Year
  Sex: Male

DRUGS (1)
  1. MAALOX (NCH) (CALCIUM CARBONATE) CHEWABLE TABLET [Suspect]
     Indication: STOMACH DISCOMFORT
     Dosage: 400 MG ONCE/SINGLE, ORAL
     Route: 048
     Dates: start: 20070831

REACTIONS (3)
  - DEHYDRATION [None]
  - STOMACH DISCOMFORT [None]
  - VOMITING [None]
